FAERS Safety Report 14132039 (Version 1)
Quarter: 2017Q4

REPORT INFORMATION
  Report Type: Spontaneous
  Country: CN (occurrence: CN)
  Receive Date: 20171027
  Receipt Date: 20171027
  Transmission Date: 20180321
  Serious: Yes (Hospitalization, Other)
  Sender: FDA-Public Use
  Company Number: CN-GILEAD-2017-0294227

PATIENT
  Sex: Male
  Weight: 56 kg

DRUGS (1)
  1. VIREAD [Suspect]
     Active Substance: TENOFOVIR DISOPROXIL FUMARATE
     Indication: HEPATITIS B
     Dosage: 300 MG, QD
     Route: 048
     Dates: start: 20170720, end: 20170915

REACTIONS (4)
  - Drug ineffective [Unknown]
  - Renal failure [Unknown]
  - Viral load increased [Unknown]
  - Hepatic failure [Unknown]
